FAERS Safety Report 7715970-3 (Version None)
Quarter: 2011Q3

REPORT INFORMATION
  Report Type: 
  Country: None (occurrence: None)
  Receive Date: 20110822
  Receipt Date: 20110806
  Transmission Date: 20111222
  Serious: Yes (Hospitalization)
  Sender: FDA-Public Use
  Company Number: SV-1186381

PATIENT
  Sex: Male

DRUGS (3)
  1. VIGAMOX [Suspect]
     Indication: EYE DISCHARGE
     Dosage: OPHTHALMIC
     Route: 047
  2. AMPICILLIN SODIUM [Concomitant]
  3. AMIKACIN [Concomitant]

REACTIONS (1)
  - DRUG INEFFECTIVE [None]
